FAERS Safety Report 24011887 (Version 2)
Quarter: 2024Q3

REPORT INFORMATION
  Report Type: Spontaneous
  Country: US (occurrence: US)
  Receive Date: 20240625
  Receipt Date: 20240925
  Transmission Date: 20241017
  Serious: No
  Sender: BAUSCH AND LOMB
  Company Number: US-BAUSCH-BL-2024-009481

PATIENT
  Age: 37 Year
  Sex: Male

DRUGS (15)
  1. BUPROPION [Suspect]
     Active Substance: BUPROPION
     Indication: Product used for unknown indication
     Route: 065
     Dates: end: 20240512
  2. LUMRYZ [Suspect]
     Active Substance: SODIUM OXYBATE
     Indication: Narcolepsy
     Dosage: EXTENDED-RELEASE ORAL SUSPENSION, 4.5 G, ONCE NIGHTLY, ORAL USE
     Route: 048
     Dates: start: 20240510, end: 202405
  3. LUMRYZ [Suspect]
     Active Substance: SODIUM OXYBATE
     Indication: Hypersomnia
     Dosage: EXTENDED-RELEASE ORAL SUSPENSION, 6 G, ONCE NIGHTLY, ORAL USE
     Route: 048
     Dates: start: 202405, end: 202406
  4. LUMRYZ [Suspect]
     Active Substance: SODIUM OXYBATE
     Dosage: EXTENDED-RELEASE ORAL SUSPENSION, 7.5 G, ONCE NIGHTLY, ORAL USE
     Route: 048
     Dates: start: 202406, end: 20240612
  5. ZOLOFT [Suspect]
     Active Substance: SERTRALINE HYDROCHLORIDE
     Indication: Product used for unknown indication
     Route: 065
     Dates: end: 20240512
  6. LEXAPRO [Suspect]
     Active Substance: ESCITALOPRAM OXALATE
     Indication: Product used for unknown indication
     Route: 065
     Dates: end: 2024
  7. VITAMINS [Concomitant]
     Active Substance: VITAMINS
     Indication: Product used for unknown indication
     Dates: end: 20240612
  8. VITAMINS [Concomitant]
     Active Substance: VITAMINS
     Dates: start: 202406
  9. MINOXIDIL [Concomitant]
     Active Substance: MINOXIDIL
     Indication: Product used for unknown indication
     Dates: end: 20240612
  10. MINOXIDIL [Concomitant]
     Active Substance: MINOXIDIL
     Dates: start: 202406
  11. FINASTERIDE [Concomitant]
     Active Substance: FINASTERIDE
     Indication: Product used for unknown indication
     Dates: end: 20240612
  12. FINASTERIDE [Concomitant]
     Active Substance: FINASTERIDE
     Dates: start: 202406
  13. MODAFINIL [Concomitant]
     Active Substance: MODAFINIL
     Indication: Product used for unknown indication
  14. ADDERALL [Concomitant]
     Active Substance: AMPHETAMINE ASPARTATE\AMPHETAMINE SULFATE\DEXTROAMPHETAMINE SACCHARATE\DEXTROAMPHETAMINE SULFATE
     Indication: Product used for unknown indication
     Dates: end: 20240612
  15. ADDERALL [Concomitant]
     Active Substance: AMPHETAMINE ASPARTATE\AMPHETAMINE SULFATE\DEXTROAMPHETAMINE SACCHARATE\DEXTROAMPHETAMINE SULFATE
     Dates: start: 202406

REACTIONS (6)
  - Brain fog [Recovered/Resolved]
  - Confusional state [Recovered/Resolved]
  - Initial insomnia [Not Recovered/Not Resolved]
  - Headache [Not Recovered/Not Resolved]
  - Heart rate increased [Recovering/Resolving]
  - Palpitations [Not Recovered/Not Resolved]

NARRATIVE: CASE EVENT DATE: 20240501
